FAERS Safety Report 12090398 (Version 1)
Quarter: 2016Q1

REPORT INFORMATION
  Report Type: Spontaneous
  Country: US (occurrence: US)
  Receive Date: 20160218
  Receipt Date: 20160218
  Transmission Date: 20160526
  Serious: No
  Sender: FDA-Public Use
  Company Number: US-ENDO PHARMACEUTICALS INC.-2015-000830

PATIENT
  Age: 88 Year
  Sex: Female
  Weight: 69.92 kg

DRUGS (4)
  1. METHOCARBAMOL TABLETS 500MG [Suspect]
     Active Substance: METHOCARBAMOL
     Indication: ARTHRALGIA
     Route: 048
     Dates: start: 20150412, end: 20150413
  2. METHOCARBAMOL TABLETS 500MG [Suspect]
     Active Substance: METHOCARBAMOL
     Indication: KNEE ARTHROPLASTY
  3. METHOCARBAMOL TABLETS 500MG [Suspect]
     Active Substance: METHOCARBAMOL
     Indication: NEURALGIA
  4. ROBITUSSIN COUGH AND CHEST CONGESTION DM [Suspect]
     Active Substance: DEXTROMETHORPHAN HYDROBROMIDE\GUAIFENESIN
     Indication: COUGH
     Route: 065
     Dates: start: 201504

REACTIONS (2)
  - Cough [Unknown]
  - Expired product administered [Recovered/Resolved]

NARRATIVE: CASE EVENT DATE: 201504
